FAERS Safety Report 5071688-X (Version None)
Quarter: 2006Q3

REPORT INFORMATION
  Report Type: 
  Country: None (occurrence: None)
  Receive Date: 20060804
  Receipt Date: 20060724
  Transmission Date: 20061208
  Serious: Yes (Disabling)
  Sender: FDA-Public Use
  Company Number: PHNR2006AU00951

PATIENT
  Age: 65 Year
  Sex: Male
  Weight: 83 kg

DRUGS (1)
  1. ZOMETA [Suspect]
     Dosage: 4.0 MG MONTHLY
     Route: 042
     Dates: start: 20051003, end: 20051010

REACTIONS (1)
  - OSTEONECROSIS [None]
